FAERS Safety Report 25838741 (Version 1)
Quarter: 2025Q3

REPORT INFORMATION
  Report Type: Spontaneous
  Country: EU (occurrence: EU)
  Receive Date: 20250924
  Receipt Date: 20250924
  Transmission Date: 20251021
  Serious: Yes (Hospitalization)
  Sender: CHEPLAPHARM
  Company Number: None

PATIENT
  Age: 1 Year
  Sex: Male
  Weight: 12 kg

DRUGS (4)
  1. GANCICLOVIR [Suspect]
     Active Substance: GANCICLOVIR
     Indication: Cytomegalovirus infection
     Dosage: 60 MILLIGRAMS EVERY HOUR?DAILY DOSE: 10 MILLIGRAM/KG
     Route: 058
     Dates: start: 20250829, end: 20250902
  2. TACROLIMUS [Concomitant]
     Active Substance: TACROLIMUS
  3. URSODIOL [Concomitant]
     Active Substance: URSODIOL
  4. SECTRAL [Concomitant]
     Active Substance: ACEBUTOLOL HYDROCHLORIDE

REACTIONS (4)
  - Oedema peripheral [Recovered/Resolved]
  - Administration site extravasation [Recovered/Resolved]
  - Off label use [Recovered/Resolved]
  - Off label use [Recovered/Resolved]

NARRATIVE: CASE EVENT DATE: 20250829
